FAERS Safety Report 20037535 (Version 1)
Quarter: 2021Q4

REPORT INFORMATION
  Report Type: Spontaneous
  Country: DE (occurrence: DE)
  Receive Date: 20211105
  Receipt Date: 20211105
  Transmission Date: 20220303
  Serious: Yes (Hospitalization, Other)
  Sender: FDA-Public Use
  Company Number: DE-ADRED-06910-01

PATIENT
  Age: 86 Year
  Sex: Male
  Weight: 60 kg

DRUGS (5)
  1. PREDNISOLONE [Suspect]
     Active Substance: PREDNISOLONE
     Indication: Product used for unknown indication
     Dosage: 5 MG, 1-0-0-0
  2. ASPIRIN [Suspect]
     Active Substance: ASPIRIN
     Indication: Product used for unknown indication
     Dosage: 100 MG, 0-0-1-0
  3. TORSEMIDE [Concomitant]
     Active Substance: TORSEMIDE
     Dosage: 30 MILLIGRAM, QD (10 MG, 2-1-0-0)
  4. SPIRONOLACTONE [Concomitant]
     Active Substance: SPIRONOLACTONE
     Dosage: 50 MG, 1-0-0-0
  5. DIGOXIN [Concomitant]
     Active Substance: DIGOXIN
     Dosage: 0.25 MG, 0.5-0-0-0

REACTIONS (11)
  - Atrial flutter [Unknown]
  - Abdominal distension [Unknown]
  - Conduction disorder [Unknown]
  - Oedema peripheral [Unknown]
  - Dyspnoea [Unknown]
  - Autoimmune hepatitis [Unknown]
  - Hepatic cirrhosis [Unknown]
  - General physical health deterioration [Unknown]
  - Arrhythmia [Unknown]
  - Electrocardiogram abnormal [Unknown]
  - Anaemia [Unknown]
